FAERS Safety Report 23007892 (Version 2)
Quarter: 2024Q3

REPORT INFORMATION
  Report Type: Report from Study
  Country: US (occurrence: US)
  Receive Date: 20230929
  Receipt Date: 20240822
  Transmission Date: 20241016
  Serious: No
  Sender: NOVARTIS
  Company Number: US-SANDOZ-SDZ2023US031923

PATIENT
  Sex: Male

DRUGS (6)
  1. ENTRESTO [Suspect]
     Active Substance: SACUBITRIL\VALSARTAN
     Indication: Product used for unknown indication
     Dosage: 97/103 MG, BID (CONCENTRATION: 97/103 MG)
     Route: 048
     Dates: start: 202304
  2. ENTRESTO [Suspect]
     Active Substance: SACUBITRIL\VALSARTAN
     Dosage: 97/103 MG, BID (CONCENTRATION: 97/103 MG)
     Route: 048
  3. ENTRESTO [Suspect]
     Active Substance: SACUBITRIL\VALSARTAN
     Dosage: (24/26 MG), BID (CONCENTRATION: 24/26 MG)
     Route: 048
  4. PANTOPRAZOLE [Suspect]
     Active Substance: PANTOPRAZOLE
     Indication: Barrett^s oesophagus
     Dosage: UNK
     Route: 065
  5. BACLOFEN [Suspect]
     Active Substance: BACLOFEN
     Indication: Barrett^s oesophagus
     Dosage: UNK
     Route: 065
  6. SUCRALFATE [Suspect]
     Active Substance: SUCRALFATE
     Indication: Barrett^s oesophagus
     Dosage: UNK
     Route: 065

REACTIONS (8)
  - Weight decreased [Unknown]
  - Dysphagia [Unknown]
  - Blood pressure decreased [Unknown]
  - Cough [Unknown]
  - Throat clearing [Unknown]
  - Product use in unapproved indication [Unknown]
  - Hiccups [Recovering/Resolving]
  - Dyspepsia [Unknown]
